FAERS Safety Report 4398786-8 (Version None)
Quarter: 2004Q3

REPORT INFORMATION
  Report Type: 
  Country: None (occurrence: None)
  Receive Date: 20040712
  Receipt Date: 20040630
  Transmission Date: 20050211
  Serious: Yes (Death)
  Sender: FDA-Public Use
  Company Number: 163-20785-04060022

PATIENT
  Age: 75 Year
  Sex: Male

DRUGS (3)
  1. THALOMID [Suspect]
     Indication: MYELODYSPLASTIC SYNDROME
     Dosage: 150 MG, DAILY, ORAL
     Route: 048
     Dates: start: 20040217, end: 20040330
  2. IDARUBICIN HCL [Suspect]
     Indication: ACUTE MYELOID LEUKAEMIA
     Dosage: 3 CYCLES
     Dates: end: 20040101
  3. CYTARABINE [Suspect]
     Indication: ACUTE MYELOID LEUKAEMIA
     Dosage: 7 CYCLES
     Dates: end: 20040101

REACTIONS (2)
  - ACUTE MYELOID LEUKAEMIA [None]
  - NEUTROPENIC SEPSIS [None]
